FAERS Safety Report 19714958 (Version 2)
Quarter: 2021Q4

REPORT INFORMATION
  Report Type: Report from Study
  Country: US (occurrence: US)
  Receive Date: 20210818
  Receipt Date: 20211007
  Transmission Date: 20220303
  Serious: Yes (Hospitalization)
  Sender: FDA-Public Use
  Company Number: US-MERCK HEALTHCARE KGAA-9258858

PATIENT
  Age: 68 Year
  Sex: Male

DRUGS (1)
  1. REBIF [Suspect]
     Active Substance: INTERFERON BETA-1A
     Indication: Product used for unknown indication
     Route: 058
     Dates: start: 20180330

REACTIONS (3)
  - Catheterisation cardiac [Unknown]
  - Arterial injury [Unknown]
  - Cardiac procedure complication [Unknown]

NARRATIVE: CASE EVENT DATE: 20210601
